FAERS Safety Report 6850794-0 (Version None)
Quarter: 2010Q3

REPORT INFORMATION
  Report Type: 
  Country: None (occurrence: None)
  Receive Date: 20100716
  Receipt Date: 20071023
  Transmission Date: 20110219
  Serious: No
  Sender: FDA-Public Use
  Company Number: US-PFIZER INC-2007089649

PATIENT
  Age: 28 Year
  Sex: Male
  Weight: 81.8 kg

DRUGS (1)
  1. CHANTIX [Suspect]
     Indication: SMOKING CESSATION THERAPY
     Dates: start: 20071014, end: 20071022

REACTIONS (5)
  - DIARRHOEA [None]
  - FATIGUE [None]
  - INSOMNIA [None]
  - NAUSEA [None]
  - SLEEP DISORDER [None]
